FAERS Safety Report 4612638-7 (Version None)
Quarter: 2005Q1

REPORT INFORMATION
  Report Type: 
  Country: None (occurrence: None)
  Receive Date: 20050316
  Receipt Date: 20050301
  Transmission Date: 20050727
  Serious: Yes (Hospitalization, Disabling, Other)
  Sender: FDA-Public Use
  Company Number: USA-2004-0016540

PATIENT
  Age: 30 Year
  Sex: Male

DRUGS (2)
  1. OXYCONTIN [Suspect]
     Indication: PAIN
     Dosage: 20  MG, Q12H
     Dates: start: 20011204
  2. XANAX [Concomitant]

REACTIONS (20)
  - ANOXIC ENCEPHALOPATHY [None]
  - COGNITIVE DISORDER [None]
  - COMA [None]
  - CONDITION AGGRAVATED [None]
  - DRUG DEPENDENCE [None]
  - EMOTIONAL DISORDER [None]
  - HYPOXIC ENCEPHALOPATHY [None]
  - INADEQUATE ANALGESIA [None]
  - INJURY [None]
  - MENTAL DISORDER [None]
  - OVERDOSE [None]
  - PAIN [None]
  - PNEUMONIA ASPIRATION [None]
  - RENAL FAILURE [None]
  - RESPIRATORY FAILURE [None]
  - SCAR [None]
  - SEPSIS [None]
  - SINUS TACHYCARDIA [None]
  - SUICIDE ATTEMPT [None]
  - VOMITING [None]
